FAERS Safety Report 5360728-6 (Version None)
Quarter: 2007Q2

REPORT INFORMATION
  Report Type: 
  Country: None (occurrence: None)
  Receive Date: 20070618
  Receipt Date: 20070613
  Transmission Date: 20071010
  Serious: Yes (Other)
  Sender: FDA-Public Use
  Company Number: US-ROCHE-502030

PATIENT
  Age: 37 Year
  Sex: Female

DRUGS (4)
  1. KLONOPIN [Suspect]
     Indication: EPILEPSY
     Dosage: 1-2 PRN (NOS)
     Route: 065
  2. TEGRETOL [Suspect]
     Indication: EPILEPSY
     Dosage: DOSE WAS REPORTED AS 900 (NOS)
     Route: 065
  3. MULTI-VITAMINS [Concomitant]
  4. FOLIC ACID [Concomitant]

REACTIONS (1)
  - ABORTION SPONTANEOUS [None]
